FAERS Safety Report 21719598 (Version 1)
Quarter: 2022Q4

REPORT INFORMATION
  Report Type: Report from Study
  Country: BR (occurrence: BR)
  Receive Date: 20221213
  Receipt Date: 20221213
  Transmission Date: 20230112
  Serious: Yes (Other)
  Sender: FDA-Public Use
  Company Number: BR-CELLTRION INC.-2022BR020777

PATIENT

DRUGS (1)
  1. INFLIXIMAB [Suspect]
     Active Substance: INFLIXIMAB
     Indication: Ankylosing spondylitis
     Dosage: 4 AMPOULES EVERY 45 DAYS; ROUTE OF ADMINISTRATION: ENDOVENOUS
     Route: 042

REACTIONS (5)
  - Colitis ulcerative [Recovering/Resolving]
  - Dysentery [Recovering/Resolving]
  - Dyschezia [Recovering/Resolving]
  - Treatment delayed [Unknown]
  - Off label use [Unknown]

NARRATIVE: CASE EVENT DATE: 20221123
